FAERS Safety Report 10606107 (Version 1)
Quarter: 2014Q4

REPORT INFORMATION
  Report Type: Report from Study
  Country: CN (occurrence: CN)
  Receive Date: 20141125
  Receipt Date: 20141125
  Transmission Date: 20150529
  Serious: Yes (Death, Hospitalization)
  Sender: FDA-Public Use
  Company Number: CN-ACTELION-A-CH2014-108298

PATIENT
  Age: 34 Year
  Sex: Female

DRUGS (4)
  1. TRACLEER [Concomitant]
     Active Substance: BOSENTAN\BOSENTAN MONOHYDRATE
     Indication: PULMONARY ARTERIAL HYPERTENSION
  2. WARFARIN [Concomitant]
     Active Substance: WARFARIN
  3. VENTAVIS [Suspect]
     Active Substance: ILOPROST
     Indication: PULMONARY ARTERIAL HYPERTENSION
     Dosage: FREQUENCY 6-9 TIMES
     Route: 055
  4. DIGITALIS [Concomitant]
     Active Substance: DIGITALIS

REACTIONS (5)
  - Death [Fatal]
  - Chest discomfort [Unknown]
  - Dyspnoea [Unknown]
  - Flushing [Recovering/Resolving]
  - Nasopharyngitis [Unknown]

NARRATIVE: CASE EVENT DATE: 2010
